FAERS Safety Report 6126923-3 (Version None)
Quarter: 2009Q1

REPORT INFORMATION
  Report Type: 
  Country: None (occurrence: None)
  Receive Date: 20090320
  Receipt Date: 20090119
  Transmission Date: 20090719
  Serious: No
  Sender: FDA-Public Use
  Company Number: US-ABBOTT-09P-163-0498744-00

PATIENT
  Sex: Female
  Weight: 90.8 kg

DRUGS (1)
  1. ERYTHROMYCIN BASE [Suspect]
     Indication: ANTIBIOTIC PROPHYLAXIS
     Dosage: TOOK 1 TABLET
     Dates: start: 19680101, end: 19680101

REACTIONS (1)
  - VOMITING [None]
